FAERS Safety Report 21932673 (Version 1)
Quarter: 2023Q1

REPORT INFORMATION
  Report Type: Spontaneous
  Country: None (occurrence: US)
  Receive Date: 20230131
  Receipt Date: 20230131
  Transmission Date: 20230418
  Serious: No
  Sender: FDA-Public Use
  Company Number: US-Ascend Therapeutics US, LLC-2137311

PATIENT
  Sex: Female

DRUGS (10)
  1. ESTROGEL [Suspect]
     Active Substance: ESTRADIOL
     Indication: Product used for unknown indication
     Route: 065
     Dates: start: 202203
  2. ESTROGEL [Suspect]
     Active Substance: ESTRADIOL
  3. ESTRADIOL [Suspect]
     Active Substance: ESTRADIOL
     Route: 065
     Dates: start: 202203
  4. PROGESTERONE [Suspect]
     Active Substance: PROGESTERONE
     Route: 065
     Dates: start: 202203
  5. pineapple core(ANANAS COMOSUS) [Concomitant]
     Route: 065
     Dates: start: 2022
  6. vitamin d3(COLECALCIFEROL) [Concomitant]
     Route: 065
     Dates: start: 2022
  7. omega 3(FISH OIL) [Concomitant]
     Route: 065
     Dates: start: 2022
  8. inositol(INOSITOL) [Concomitant]
     Route: 065
     Dates: start: 2022
  9. LETROZOLE [Concomitant]
     Active Substance: LETROZOLE
     Route: 065
     Dates: start: 2022
  10. OVIDREL [Concomitant]
     Active Substance: CHORIOGONADOTROPIN ALFA
     Route: 065
     Dates: start: 2022

REACTIONS (8)
  - Blood glucose increased [Unknown]
  - Muscle spasms [Unknown]
  - Hyperaesthesia teeth [Unknown]
  - Nipple pain [Unknown]
  - Abnormal dreams [Unknown]
  - Constipation [Unknown]
  - Nausea [Unknown]
  - Exposure during pregnancy [None]

NARRATIVE: CASE EVENT DATE: 20220301
